FAERS Safety Report 6937740 (Version 5)
Quarter: 2013Q1

REPORT INFORMATION
  Report Type: Spontaneous
  Country: US (occurrence: US)
  Receive Date: 20090313
  Receipt Date: 20130327
  Transmission Date: 20140127
  Serious: Yes (Hospitalization, Other)
  Sender: FDA-Public Use
  Company Number: US-PURDUE-USA_2009_0037313

PATIENT
  Sex: Male

DRUGS (2)
  1. OXYCONTIN TABLETS [Suspect]
     Indication: PAIN
     Dosage: 60 MG, TID
     Dates: start: 2001, end: 200802
  2. OXYCONTIN TABLETS [Suspect]
     Dosage: 10 MG, UNK

REACTIONS (13)
  - Drug dependence [Unknown]
  - Suicidal ideation [Unknown]
  - Skull fracture [Unknown]
  - Myocardial infarction [Unknown]
  - Convulsion [Unknown]
  - Memory impairment [Unknown]
  - Fall [Unknown]
  - Head injury [Unknown]
  - Abasia [Unknown]
  - Mental impairment [Unknown]
  - Therapeutic response decreased [Unknown]
  - Drug tolerance [Unknown]
  - Dizziness [Unknown]
